FAERS Safety Report 17164481 (Version 9)
Quarter: 2020Q1

REPORT INFORMATION
  Report Type: Spontaneous
  Country: HR (occurrence: HR)
  Receive Date: 20191217
  Receipt Date: 20200204
  Transmission Date: 20200409
  Serious: Yes (Hospitalization, Other)
  Sender: FDA-Public Use
  Company Number: HR-PFIZER INC-2019540728

PATIENT
  Sex: Female

DRUGS (4)
  1. SORTIS [Suspect]
     Active Substance: ATORVASTATIN
     Dosage: UNK
  2. ASPIRIN [ACETYLSALICYLIC ACID] [Suspect]
     Active Substance: ASPIRIN
     Dosage: UNK
  3. PANTOPRAZOLE [Suspect]
     Active Substance: PANTOPRAZOLE
     Dosage: UNK
  4. RAMIPRIL. [Suspect]
     Active Substance: RAMIPRIL
     Dosage: UNK

REACTIONS (3)
  - Myocardial infarction [Recovered/Resolved]
  - Disease recurrence [Recovered/Resolved]
  - Atrial fibrillation [Recovered/Resolved]
